FAERS Safety Report 8940434 (Version 22)
Quarter: 2016Q1

REPORT INFORMATION
  Report Type: Spontaneous
  Country: CA (occurrence: CA)
  Receive Date: 20121203
  Receipt Date: 20160119
  Transmission Date: 20160526
  Serious: Yes (Hospitalization, Other)
  Sender: FDA-Public Use
  Company Number: CA-ROCHE-1162558

PATIENT
  Age: 72 Year
  Sex: Male

DRUGS (19)
  1. XOLAIR [Suspect]
     Active Substance: OMALIZUMAB
     Route: 058
     Dates: start: 20130318
  2. XOLAIR [Suspect]
     Active Substance: OMALIZUMAB
     Route: 058
     Dates: start: 20140825
  3. CLARITIN [Concomitant]
     Active Substance: LORATADINE
  4. AMIODARONE [Concomitant]
     Active Substance: AMIODARONE
  5. NASONEX [Concomitant]
     Active Substance: MOMETASONE FUROATE
  6. ENDOCET [Concomitant]
     Active Substance: ACETAMINOPHEN\OXYCODONE HYDROCHLORIDE
  7. XOLAIR [Suspect]
     Active Substance: OMALIZUMAB
     Route: 058
     Dates: start: 20151229
  8. FLOVENT [Concomitant]
     Active Substance: FLUTICASONE PROPIONATE
  9. SALBUTAMOL [Concomitant]
     Active Substance: ALBUTEROL
  10. ADVAIR HFA [Concomitant]
     Active Substance: FLUTICASONE PROPIONATE\SALMETEROL XINAFOATE
  11. XOLAIR [Suspect]
     Active Substance: OMALIZUMAB
     Route: 058
     Dates: start: 20130107
  12. XOLAIR [Suspect]
     Active Substance: OMALIZUMAB
     Route: 058
     Dates: start: 20131231
  13. CARDIZEM [Concomitant]
     Active Substance: DILTIAZEM HYDROCHLORIDE
  14. PLAVIX [Concomitant]
     Active Substance: CLOPIDOGREL BISULFATE
  15. XOLAIR [Suspect]
     Active Substance: OMALIZUMAB
     Route: 058
     Dates: start: 20151006
  16. XOLAIR [Suspect]
     Active Substance: OMALIZUMAB
     Indication: ASTHMA
     Route: 058
     Dates: start: 20101103
  17. TECTA [Concomitant]
     Active Substance: PANTOPRAZOLE MAGNESIUM
  18. SINGULAIR [Concomitant]
     Active Substance: MONTELUKAST SODIUM
  19. LIPITOR [Concomitant]
     Active Substance: ATORVASTATIN CALCIUM

REACTIONS (29)
  - Gallbladder disorder [Unknown]
  - Lacrimation increased [Unknown]
  - Weight increased [Unknown]
  - Removal of foreign body from throat [Recovered/Resolved]
  - Nephrolithiasis [Recovering/Resolving]
  - Respiratory tract congestion [Recovered/Resolved]
  - Abdominal discomfort [Unknown]
  - Abdominal pain upper [Unknown]
  - Asthenia [Unknown]
  - Blood pressure systolic increased [Not Recovered/Not Resolved]
  - Vertigo [Unknown]
  - Dysstasia [Unknown]
  - Weight decreased [Unknown]
  - Aneurysm [Unknown]
  - Eye irritation [Unknown]
  - Diarrhoea [Unknown]
  - Pain in extremity [Not Recovered/Not Resolved]
  - Balance disorder [Unknown]
  - Decreased appetite [Unknown]
  - Chest pain [Unknown]
  - Lower respiratory tract infection [Recovering/Resolving]
  - Blood urine present [Unknown]
  - Melanocytic naevus [Unknown]
  - Nasopharyngitis [Recovering/Resolving]
  - Malaise [Unknown]
  - Contusion [Unknown]
  - Myalgia [Unknown]
  - Scar [Unknown]
  - Vomiting [Unknown]

NARRATIVE: CASE EVENT DATE: 20121122
